FAERS Safety Report 16793243 (Version 1)
Quarter: 2019Q3

REPORT INFORMATION
  Report Type: Spontaneous
  Country: US (occurrence: US)
  Receive Date: 20190911
  Receipt Date: 20190911
  Transmission Date: 20191005
  Serious: No
  Sender: FDA-Public Use
  Company Number: US-BIOGEN-2019BI00780087

PATIENT
  Sex: Female

DRUGS (3)
  1. METOPROLOL SUCCINATE. [Concomitant]
     Active Substance: METOPROLOL SUCCINATE
     Route: 065
  2. NAPROXEN. [Concomitant]
     Active Substance: NAPROXEN
     Route: 065
  3. TECFIDERA [Suspect]
     Active Substance: DIMETHYL FUMARATE
     Indication: MULTIPLE SCLEROSIS
     Dosage: TAKE 1 CAPSULE BY?MOUTH DAILY FOR 7?DAYS THEN 1 CAPSULE?TWICE A DAY FOR 7?DAYS THEN 2 CAPSULES?IN...
     Route: 048

REACTIONS (2)
  - Flushing [Recovered/Resolved]
  - Fatigue [Not Recovered/Not Resolved]
